FAERS Safety Report 14556140 (Version 1)
Quarter: 2018Q1

REPORT INFORMATION
  Report Type: Spontaneous
  Country: GB (occurrence: GB)
  Receive Date: 20180221
  Receipt Date: 20180221
  Transmission Date: 20180509
  Serious: Yes (Other)
  Sender: FDA-Public Use
  Company Number: GB-CONCORDIA PHARMACEUTICALS INC.-GSH201802-000642

PATIENT
  Sex: Female

DRUGS (16)
  1. LASIX [Concomitant]
     Active Substance: FUROSEMIDE
  2. ARAVA [Suspect]
     Active Substance: LEFLUNOMIDE
     Indication: RHEUMATOID ARTHRITIS
     Route: 065
  3. METOPROLOL. [Concomitant]
     Active Substance: METOPROLOL
  4. PRAVASTATIN SODIUM. [Concomitant]
     Active Substance: PRAVASTATIN SODIUM
  5. TYLENOL ARTHRITIS PAIN [Concomitant]
     Active Substance: ACETAMINOPHEN
  6. ENALAPRIL [Concomitant]
     Active Substance: ENALAPRIL
  7. ORENCIA [Concomitant]
     Active Substance: ABATACEPT
  8. PREDNISONE. [Concomitant]
     Active Substance: PREDNISONE
  9. ASPIRIN. [Concomitant]
     Active Substance: ASPIRIN
  10. FOLIC ACID. [Concomitant]
     Active Substance: FOLIC ACID
  11. AZATHIOPRINE. [Concomitant]
     Active Substance: AZATHIOPRINE
  12. NUVIGIL [Concomitant]
     Active Substance: ARMODAFINIL
  13. PLAQUENIL [Suspect]
     Active Substance: HYDROXYCHLOROQUINE SULFATE
     Indication: RHEUMATOID ARTHRITIS
     Route: 048
  14. PLAQUENIL [Suspect]
     Active Substance: HYDROXYCHLOROQUINE SULFATE
     Route: 048
  15. POTASSIUM CITRATE. [Concomitant]
     Active Substance: POTASSIUM CITRATE
  16. MTX [Concomitant]
     Active Substance: METHOTREXATE SODIUM

REACTIONS (5)
  - Abdominal pain [Unknown]
  - Drug intolerance [Unknown]
  - Abdominal discomfort [Unknown]
  - Diarrhoea [Unknown]
  - Rheumatoid arthritis [Not Recovered/Not Resolved]
